FAERS Safety Report 7385994-7 (Version None)
Quarter: 2011Q1

REPORT INFORMATION
  Report Type: 
  Country: None (occurrence: None)
  Receive Date: 20110331
  Receipt Date: 20101123
  Transmission Date: 20110831
  Serious: Yes (Hospitalization, Other)
  Sender: FDA-Public Use
  Company Number: US-BAYER-201038104NA

PATIENT
  Sex: Female
  Weight: 118 kg

DRUGS (16)
  1. ZOFRAN [Concomitant]
     Indication: NAUSEA
     Dosage: 8 MG, UNK
     Route: 048
     Dates: start: 20080708
  2. MOTRIN [Concomitant]
     Indication: PHARYNGITIS
  3. YAZ [Suspect]
     Indication: ACNE
     Dosage: UNK UNK, QD
     Route: 048
     Dates: start: 20080708, end: 20100101
  4. YAZ [Suspect]
     Indication: MENORRHAGIA
  5. OCELLA [Suspect]
     Indication: MENORRHAGIA
  6. MULTI-VITAMINS [Concomitant]
     Dosage: UNK
  7. MOTRIN [Concomitant]
     Indication: EAR INFECTION
     Dosage: UNK UNK, PRN
  8. YASMIN [Suspect]
     Dosage: 1 DF, QD
     Dates: start: 20080708, end: 20100101
  9. AMOXIL [Concomitant]
     Indication: PHARYNGITIS
  10. AUGMENTIN [Concomitant]
     Indication: ACUTE SINUSITIS
     Dosage: 875 MG (1 TABLET), PRN
     Route: 048
     Dates: start: 20081021
  11. AMOXIL [Concomitant]
     Indication: EAR INFECTION
     Dosage: 50 MG, BID
     Dates: start: 20080101
  12. YASMIN [Suspect]
     Indication: MENORRHAGIA
     Dosage: 2 DF, UNK
     Route: 048
     Dates: start: 20080708, end: 20100101
  13. YASMIN [Suspect]
     Indication: ACNE
     Dosage: 3 DF, QD
     Route: 048
     Dates: start: 20080708, end: 20100101
  14. TYLENOL W/ CODEINE NO. 3 [Concomitant]
     Indication: EAR INFECTION
  15. OCELLA [Suspect]
     Indication: ACNE
     Dosage: UNK UNK, QD
     Route: 048
     Dates: start: 20080708, end: 20100101
  16. TYLENOL W/ CODEINE NO. 3 [Concomitant]
     Indication: PHARYNGITIS
     Dosage: UNK UNK, PRN
     Dates: start: 20080101

REACTIONS (6)
  - JAUNDICE [None]
  - ABDOMINAL PAIN [None]
  - INJURY [None]
  - HEPATIC ENZYME INCREASED [None]
  - NAUSEA [None]
  - CHOLELITHIASIS [None]
